FAERS Safety Report 9971323 (Version 1)
Quarter: 2014Q1

REPORT INFORMATION
  Report Type: Report from Study
  Country: US (occurrence: US)
  Receive Date: 20140306
  Receipt Date: 20140306
  Transmission Date: 20141002
  Serious: No
  Sender: FDA-Public Use
  Company Number: US-ABBVIE-13P-163-1147858-00

PATIENT
  Age: 69 Year
  Sex: Female

DRUGS (19)
  1. HUMIRA [Suspect]
     Indication: PSORIATIC ARTHROPATHY
     Dates: start: 20130913
  2. METHOTREXATE [Concomitant]
     Indication: PRODUCT USED FOR UNKNOWN INDICATION
  3. PRAVASTATIN [Concomitant]
     Indication: BLOOD CHOLESTEROL INCREASED
     Dosage: 80MG DAILY
  4. CELEXA [Concomitant]
     Indication: DEPRESSION
     Dosage: 40MG DAILY
  5. LEVOTHYROXINE [Concomitant]
     Indication: THYROID FUNCTION TEST ABNORMAL
     Dosage: 100MG DAILY
  6. FISH OIL [Concomitant]
     Indication: PRODUCT USED FOR UNKNOWN INDICATION
  7. MULTIVIT [Concomitant]
     Indication: PRODUCT USED FOR UNKNOWN INDICATION
  8. METOPROLOL [Concomitant]
     Indication: HEART RATE
     Dosage: 50MG DAILY
  9. FOLIC ACID [Concomitant]
     Indication: PRODUCT USED FOR UNKNOWN INDICATION
     Dosage: 1MG DAILY
  10. SINGULAIR [Concomitant]
     Indication: HYPERSENSITIVITY
     Dosage: 10MG DAILY
  11. CALCIUM + VIT D [Concomitant]
     Indication: PRODUCT USED FOR UNKNOWN INDICATION
  12. GLUMETZA [Concomitant]
     Indication: DIABETES MELLITUS
  13. JANUVIA [Concomitant]
     Indication: DIABETES MELLITUS
     Dosage: 100MG DAILY
  14. LANSOPRAZOLE [Concomitant]
     Indication: PRODUCT USED FOR UNKNOWN INDICATION
  15. VIT B12 [Concomitant]
     Indication: PRODUCT USED FOR UNKNOWN INDICATION
  16. EPI PEN [Concomitant]
     Indication: PRODUCT USED FOR UNKNOWN INDICATION
  17. PREDNISONE [Concomitant]
     Indication: RASH PRURITIC
  18. BENADRYL [Concomitant]
     Indication: INSOMNIA
  19. MAXALT [Concomitant]
     Indication: MIGRAINE

REACTIONS (1)
  - Injection site pain [Recovered/Resolved]
